FAERS Safety Report 24063774 (Version 1)
Quarter: 2024Q3

REPORT INFORMATION
  Report Type: Spontaneous
  Country: US (occurrence: US)
  Receive Date: 20240709
  Receipt Date: 20240709
  Transmission Date: 20241017
  Serious: Yes (Other)
  Sender: AMGEN
  Company Number: US-AMGEN-USASP2024132321

PATIENT
  Age: 65 Year
  Sex: Female

DRUGS (2)
  1. SOTORASIB [Suspect]
     Active Substance: SOTORASIB
     Indication: Adenocarcinoma pancreas
     Dosage: 960 MILLIGRAM, QD
     Route: 048
     Dates: start: 202205
  2. SOTORASIB [Suspect]
     Active Substance: SOTORASIB
     Indication: Off label use
     Dosage: 720 MILLIGRAM, QD
     Route: 048
     Dates: start: 2022, end: 202303

REACTIONS (5)
  - Pancreatic carcinoma metastatic [Unknown]
  - Therapeutic product effect decreased [Unknown]
  - Therapy partial responder [Unknown]
  - Diarrhoea [Unknown]
  - Off label use [Unknown]

NARRATIVE: CASE EVENT DATE: 20220101
